FAERS Safety Report 5490981-X (Version None)
Quarter: 2007Q4

REPORT INFORMATION
  Report Type: 
  Country: None (occurrence: None)
  Receive Date: 20071019
  Receipt Date: 20071009
  Transmission Date: 20080405
  Serious: Yes (Life-Threatening, Other)
  Sender: FDA-Public Use
  Company Number: IT-ABBOTT-07P-083-0420372-00

PATIENT
  Age: 5 Year
  Sex: Male

DRUGS (3)
  1. RITONAVIR [Suspect]
     Indication: SYSTEMIC ANTIVIRAL TREATMENT
     Dosage: NOT REPORTED
  2. ZIDOVUDINE [Suspect]
     Indication: SYSTEMIC ANTIVIRAL TREATMENT
     Dosage: NOT REPORTED
  3. LAMIVUDINE [Suspect]
     Indication: SYSTEMIC ANTIVIRAL TREATMENT
     Dosage: NOT REPORTED

REACTIONS (1)
  - HYPOTHYROIDISM [None]
